FAERS Safety Report 17768855 (Version 1)
Quarter: 2020Q2

REPORT INFORMATION
  Report Type: Report from Study
  Country: FR (occurrence: FR)
  Receive Date: 20200512
  Receipt Date: 20200512
  Transmission Date: 20200714
  Serious: Yes (Hospitalization, Other)
  Sender: FDA-Public Use
  Company Number: FR-AUROBINDO-AUR-APL-2020-023957

PATIENT

DRUGS (3)
  1. ATAZANAVIR;RITONAVIR [Suspect]
     Active Substance: ATAZANAVIR\RITONAVIR
     Indication: HIV INFECTION
     Dosage: UNK
     Route: 065
  2. LAMIVUDINE. [Suspect]
     Active Substance: LAMIVUDINE
     Indication: HIV INFECTION
     Dosage: UNK
     Route: 065
  3. ABACAVIR. [Suspect]
     Active Substance: ABACAVIR
     Indication: HIV INFECTION
     Dosage: UNK
     Route: 065

REACTIONS (4)
  - Histoplasmosis [Recovering/Resolving]
  - Immune reconstitution inflammatory syndrome [Recovering/Resolving]
  - Splenomegaly [Recovering/Resolving]
  - Unmasking of previously unidentified disease [Recovering/Resolving]
